FAERS Safety Report 19040955 (Version 2)
Quarter: 2021Q3

REPORT INFORMATION
  Report Type: Spontaneous
  Country: GB (occurrence: GB)
  Receive Date: 20210322
  Receipt Date: 20210812
  Transmission Date: 20211014
  Serious: Yes (Other)
  Sender: FDA-Public Use
  Company Number: GB-MYLANLABS-2021M1014294

PATIENT
  Age: 92 Year
  Sex: Female

DRUGS (2)
  1. TRAZODONE [Suspect]
     Active Substance: TRAZODONE HYDROCHLORIDE
     Indication: AGITATION
     Dosage: 25 MILLIGRAM, QD
     Route: 048
     Dates: start: 20210224
  2. TRAZODONE [Suspect]
     Active Substance: TRAZODONE HYDROCHLORIDE
     Indication: SLEEP DISORDER
     Dosage: 50 MILLIGRAM, QD
     Route: 048
     Dates: start: 20210108

REACTIONS (7)
  - Somnolence [Unknown]
  - Glomerular filtration rate decreased [Not Recovered/Not Resolved]
  - Atrial fibrillation [Unknown]
  - Electrocardiogram abnormal [Unknown]
  - Brain natriuretic peptide increased [Unknown]
  - Lethargy [Unknown]
  - Dyspnoea [Unknown]

NARRATIVE: CASE EVENT DATE: 20210224
